FAERS Safety Report 23804510 (Version 1)
Quarter: 2024Q2

REPORT INFORMATION
  Report Type: Spontaneous
  Country: US (occurrence: None)
  Receive Date: 20240501
  Receipt Date: 20240501
  Transmission Date: 20240716
  Serious: No
  Sender: FDA-Public Use
  Company Number: None

PATIENT
  Age: 76 Year
  Sex: Male
  Weight: 99 kg

DRUGS (1)
  1. EMPAGLIFLOZIN [Suspect]
     Active Substance: EMPAGLIFLOZIN

REACTIONS (5)
  - Hypovolaemia [None]
  - Micturition urgency [None]
  - Fall [None]
  - Loss of consciousness [None]
  - Nausea [None]

NARRATIVE: CASE EVENT DATE: 20230113
